FAERS Safety Report 8430882-8 (Version None)
Quarter: 2012Q2

REPORT INFORMATION
  Report Type: 
  Country: None (occurrence: None)
  Receive Date: 20120612
  Receipt Date: 20120530
  Transmission Date: 20120825
  Serious: Yes (Other)
  Sender: FDA-Public Use
  Company Number: GB-MYLANLABS-2012S1011067

PATIENT
  Age: 33 Year
  Sex: Female

DRUGS (3)
  1. ISOTRETINOIN [Suspect]
     Indication: ACNE
     Route: 048
     Dates: start: 20120202, end: 20120510
  2. DIANETTE [Concomitant]
     Indication: CONTRACEPTION
     Route: 048
     Dates: start: 20111101
  3. ANTIBIOTICS [Concomitant]
     Indication: TOOTH INFECTION
     Route: 048
     Dates: start: 20120401, end: 20120401

REACTIONS (1)
  - MATERNAL EXPOSURE DURING PREGNANCY [None]
